FAERS Safety Report 16353126 (Version 4)
Quarter: 2022Q4

REPORT INFORMATION
  Report Type: Spontaneous
  Country: US (occurrence: US)
  Receive Date: 20190524
  Receipt Date: 20221102
  Transmission Date: 20230113
  Serious: Yes (Other)
  Sender: FDA-Public Use
  Company Number: US-PFIZER INC-2019221423

PATIENT
  Age: 86 Year
  Sex: Female

DRUGS (1)
  1. EUCRISA [Suspect]
     Active Substance: CRISABOROLE
     Indication: Dermatitis atopic
     Dosage: UNK, TWICE A DAY (TO AFFECTED AREAS ON BODY OR FACE (AS NEEDED))
     Route: 061

REACTIONS (7)
  - Multiple sclerosis [Unknown]
  - Condition aggravated [Unknown]
  - Pruritus [Unknown]
  - Eye pruritus [Unknown]
  - Burning sensation [Unknown]
  - Hypoaesthesia [Unknown]
  - Eczema [Unknown]
